FAERS Safety Report 6252077-9 (Version None)
Quarter: 2009Q2

REPORT INFORMATION
  Report Type: 
  Country: None (occurrence: None)
  Receive Date: 20090630
  Receipt Date: 20060205
  Transmission Date: 20091009
  Serious: Yes (Death, Hospitalization)
  Sender: FDA-Public Use
  Company Number: US-ROCHE-638779

PATIENT
  Sex: Female

DRUGS (9)
  1. ENFUVIRTIDE [Suspect]
     Route: 065
     Dates: start: 20040810, end: 20060223
  2. ENFUVIRTIDE [Suspect]
     Route: 065
     Dates: start: 20060223, end: 20060429
  3. EMTRIVA [Concomitant]
     Dosage: FREQUENCY: QD
     Dates: start: 20040810, end: 20060223
  4. KALETRA [Concomitant]
     Dates: start: 20040810, end: 20060223
  5. KALETRA [Concomitant]
     Dates: start: 20060223, end: 20060429
  6. VIREAD [Concomitant]
     Dosage: FREQUENCY: QD
     Dates: start: 20050923, end: 20060223
  7. BACTRIM DS [Concomitant]
     Dates: start: 20040616, end: 20060429
  8. BIAXIN [Concomitant]
     Dosage: FREQUENCY: QD
     Dates: start: 20040805
  9. DIFLUCAN [Concomitant]
     Dates: start: 20040923

REACTIONS (8)
  - ACIDOSIS [None]
  - ACQUIRED IMMUNODEFICIENCY SYNDROME [None]
  - ANAEMIA OF CHRONIC DISEASE [None]
  - CHEST PAIN [None]
  - COSTOCHONDRITIS [None]
  - HIV INFECTION [None]
  - ORAL CANDIDIASIS [None]
  - RENAL FAILURE ACUTE [None]
